FAERS Safety Report 6334508-9 (Version None)
Quarter: 2009Q3

REPORT INFORMATION
  Report Type: 
  Country: None (occurrence: None)
  Receive Date: 20090827
  Receipt Date: 20090812
  Transmission Date: 20100115
  Serious: Yes (Hospitalization)
  Sender: FDA-Public Use
  Company Number: 2009BM000190

PATIENT
  Age: 8 Year
  Sex: Female

DRUGS (1)
  1. NAGLAZYME (GLASULFASE) SOLUTION (EXCEPT SYRUP), 1.0MG/ML (GLASULFASE) [Suspect]
     Indication: MUCOPOLYSACCHARIDOSIS VI
     Dosage: IVDRP
     Route: 041

REACTIONS (1)
  - UPPER AIRWAY OBSTRUCTION [None]
